FAERS Safety Report 6784773-9 (Version None)
Quarter: 2010Q2

REPORT INFORMATION
  Report Type: 
  Country: None (occurrence: None)
  Receive Date: 20100622
  Receipt Date: 20100609
  Transmission Date: 20101027
  Serious: Yes (Hospitalization, Other)
  Sender: FDA-Public Use
  Company Number: PHHY2010FR37775

PATIENT
  Sex: Male

DRUGS (7)
  1. COTAREG [Suspect]
     Indication: HYPERTENSION
     Dosage: 1 DF, QD
     Route: 048
     Dates: end: 20100503
  2. CYMBALTA [Suspect]
     Indication: ANGINA UNSTABLE
     Dosage: 60 MG, QD
     Route: 048
     Dates: end: 20100503
  3. AMLOR [Concomitant]
     Indication: ANGINA UNSTABLE
     Dosage: 5 MG, QD
     Route: 048
     Dates: start: 20100503, end: 20100504
  4. PRAVADUAL [Concomitant]
  5. ALLOPURINOL [Concomitant]
  6. STRESAM [Concomitant]
  7. FORLAX [Concomitant]

REACTIONS (5)
  - DIZZINESS [None]
  - FALL [None]
  - HYPONATRAEMIA [None]
  - HYPOTENSION [None]
  - MALAISE [None]
